FAERS Safety Report 12857031 (Version 1)
Quarter: 2016Q4

REPORT INFORMATION
  Report Type: Spontaneous
  Country: US (occurrence: US)
  Receive Date: 20161018
  Receipt Date: 20161018
  Transmission Date: 20170207
  Serious: No
  Sender: FDA-Public Use
  Company Number: US-PFIZER INC-2016476195

PATIENT
  Sex: Male
  Weight: 102 kg

DRUGS (2)
  1. KERYDIN [Suspect]
     Active Substance: TAVABOROLE
     Dosage: DOES THAT THREE OR FOUR DAYS IN A WEEK INSTEAD OF SEVEN DAYS A WEEK.
  2. KERYDIN [Suspect]
     Active Substance: TAVABOROLE
     Indication: ONYCHOMYCOSIS
     Dosage: TWO DROPS ON EACH TOE NAIL ONCE A DAY

REACTIONS (1)
  - Rash [Recovering/Resolving]
